FAERS Safety Report 4475177-2 (Version None)
Quarter: 2004Q4

REPORT INFORMATION
  Report Type: 
  Country: None (occurrence: None)
  Receive Date: 20041013
  Receipt Date: 20041013
  Transmission Date: 20050328
  Serious: Yes (Hospitalization)
  Sender: FDA-Public Use
  Company Number: None

PATIENT
  Age: 52 Year
  Sex: Female

DRUGS (2)
  1. IOHEXOL-OMNIPAQUE- [Suspect]
     Indication: COMPUTERISED TOMOGRAM
     Dosage: IV
     Route: 042
     Dates: start: 20040122, end: 20040128
  2. IOHEXOL-OMNIPAQUE- [Suspect]
     Indication: SCAN WITH CONTRAST
     Dosage: IV
     Route: 042
     Dates: start: 20040122, end: 20040128

REACTIONS (1)
  - BLOOD CREATININE INCREASED [None]
